APPROVED DRUG PRODUCT: SODIUM POLYSTYRENE SULFONATE
Active Ingredient: SODIUM POLYSTYRENE SULFONATE
Strength: 15GM/60ML
Dosage Form/Route: SUSPENSION;ORAL, RECTAL
Application: A089049 | Product #001
Applicant: HIKMA PHARMACEUTICALS USA INC
Approved: Nov 17, 1986 | RLD: No | RS: No | Type: DISCN